APPROVED DRUG PRODUCT: DIAZEPAM
Active Ingredient: DIAZEPAM
Strength: 2MG
Dosage Form/Route: TABLET;ORAL
Application: A070302 | Product #001
Applicant: CHARTWELL RX SCIENCES LLC
Approved: Dec 20, 1985 | RLD: No | RS: No | Type: DISCN